FAERS Safety Report 12846186 (Version 1)
Quarter: 2016Q4

REPORT INFORMATION
  Report Type: Spontaneous
  Country: FR (occurrence: FR)
  Receive Date: 20161014
  Receipt Date: 20161014
  Transmission Date: 20170207
  Serious: Yes (Hospitalization, Other)
  Sender: FDA-Public Use
  Company Number: FR-009507513-1610FRA002604

PATIENT
  Age: 61 Year
  Sex: Female

DRUGS (9)
  1. SPECIAFOLDINE [Concomitant]
     Active Substance: FOLIC ACID
     Dosage: 1 TABLET IN THE MORNING TUESDAY AND FRIDAY
     Route: 048
  2. KARDEGIC [Concomitant]
     Active Substance: ASPIRIN LYSINE
     Dosage: 1 SACHET IN THE MORNING
     Route: 048
  3. IMIPENEM AND CILASTATIN [Suspect]
     Active Substance: CILASTATIN SODIUM\IMIPENEM
     Indication: URINARY TRACT INFECTION
     Dosage: 1500 MG, QD
     Route: 042
     Dates: start: 20160114, end: 20160129
  4. LANSOYL [Concomitant]
     Active Substance: MINERAL OIL
     Dosage: UNK
  5. NORMACOL [Concomitant]
     Active Substance: KARAYA GUM
     Dosage: UNK
  6. MOVICOL [Concomitant]
     Active Substance: POLYETHYLENE GLYCOL 3350\POTASSIUM CHLORIDE\SODIUM BICARBONATE\SODIUM CHLORIDE
     Dosage: UNK
     Route: 048
  7. BACTRIM [Concomitant]
     Active Substance: SULFAMETHOXAZOLE\TRIMETHOPRIM
     Dosage: 900 MG, TIW
     Route: 048
  8. NORSET (MIRTAZAPINE) [Concomitant]
     Active Substance: MIRTAZAPINE
     Dosage: 2 TABLETS IN THE EVENING
     Route: 048
  9. RISPERDAL [Concomitant]
     Active Substance: RISPERIDONE
     Dosage: 1/2 TABLET IN THE EVENING
     Route: 048

REACTIONS (4)
  - Diarrhoea [Recovered/Resolved]
  - Clostridium test positive [Recovered/Resolved]
  - Dehydration [Recovered/Resolved]
  - Clostridium difficile colitis [Recovered/Resolved]

NARRATIVE: CASE EVENT DATE: 20160224
